FAERS Safety Report 15425978 (Version 1)
Quarter: 2018Q3

REPORT INFORMATION
  Report Type: Spontaneous
  Country: DE (occurrence: DE)
  Receive Date: 20180925
  Receipt Date: 20180925
  Transmission Date: 20181010
  Serious: Yes (Other)
  Sender: FDA-Public Use
  Company Number: PHHY2018DE106658

PATIENT
  Sex: Male

DRUGS (2)
  1. AMOXIHEXAL [Suspect]
     Active Substance: AMOXICILLIN
     Indication: PRODUCT USED FOR UNKNOWN INDICATION
     Dosage: 1000 MG, QD (EVENING)
     Route: 048
     Dates: start: 20180919
  2. AMOXIHEXAL [Suspect]
     Active Substance: AMOXICILLIN
     Dosage: 1000 MG, QD (MORNING)
     Route: 048
     Dates: start: 20180920

REACTIONS (1)
  - Blood glucose increased [Unknown]

NARRATIVE: CASE EVENT DATE: 20180920
